FAERS Safety Report 5950080-7 (Version None)
Quarter: 2008Q4

REPORT INFORMATION
  Report Type: 
  Country: None (occurrence: None)
  Receive Date: 20081112
  Receipt Date: 20081105
  Transmission Date: 20090506
  Serious: Yes (Hospitalization)
  Sender: FDA-Public Use
  Company Number: US-AVENTIS-200817543US

PATIENT
  Sex: Male

DRUGS (9)
  1. LANTUS [Suspect]
     Indication: TYPE 2 DIABETES MELLITUS
     Route: 058
     Dates: start: 20070101
  2. VYTORIN [Suspect]
     Dosage: DOSE: 20/40
     Dates: end: 20081024
  3. RAMIPRIL [Suspect]
     Dates: end: 20081024
  4. METFORMIN HCL [Concomitant]
  5. PLAVIX [Concomitant]
  6. FLURAZAPAM [Concomitant]
     Dosage: DOSE: 50 MG X 2
  7. GABAPENTIN [Concomitant]
  8. FLOMAX [Concomitant]
  9. LIPITOR [Concomitant]
     Dosage: DOSE: UNK
     Dates: end: 20080801

REACTIONS (2)
  - GAIT DISTURBANCE [None]
  - MUSCULAR WEAKNESS [None]
